FAERS Safety Report 5120216-9 (Version None)
Quarter: 2006Q3

REPORT INFORMATION
  Report Type: 
  Country: None (occurrence: None)
  Receive Date: 20060928
  Receipt Date: 20060921
  Transmission Date: 20061208
  Serious: Yes (Disabling)
  Sender: FDA-Public Use
  Company Number: 2006057313

PATIENT
  Sex: Female

DRUGS (3)
  1. VIRACEPT [Suspect]
     Indication: HIV TEST POSITIVE
     Dosage: ORAL
     Route: 048
     Dates: end: 20031010
  2. RETROVIR [Suspect]
     Indication: HIV TEST POSITIVE
     Dosage: ORAL
  3. COMBIVIR [Suspect]
     Indication: HIV TEST POSITIVE
     Dosage: ORAL
     Route: 048
     Dates: end: 20031010

REACTIONS (3)
  - CAESAREAN SECTION [None]
  - CONGENITAL NOSE MALFORMATION [None]
  - DRUG EXPOSURE DURING PREGNANCY [None]
